FAERS Safety Report 18100367 (Version 2)
Quarter: 2020Q3

REPORT INFORMATION
  Report Type: Spontaneous
  Country: PL (occurrence: PL)
  Receive Date: 20200731
  Receipt Date: 20200811
  Transmission Date: 20201103
  Serious: Yes (Hospitalization, Other)
  Sender: FDA-Public Use
  Company Number: PL-MYLANLABS-2020M1068514

PATIENT
  Age: 41 Year
  Sex: Female

DRUGS (9)
  1. MYCOPHENOLATE MOFETIL. [Suspect]
     Active Substance: MYCOPHENOLATE MOFETIL
     Indication: IMMUNOSUPPRESSANT DRUG THERAPY
     Dosage: UNK
     Dates: start: 2017, end: 2019
  2. ASTAGRAF XL [Suspect]
     Active Substance: TACROLIMUS
     Indication: IMMUNOSUPPRESSANT DRUG THERAPY
     Dosage: UNK
     Dates: start: 2017
  3. THYMOGLOBULIN [Suspect]
     Active Substance: LAPINE T-LYMPHOCYTE IMMUNE GLOBULIN
     Indication: IMMUNOSUPPRESSANT DRUG THERAPY
     Dosage: UNK
     Dates: start: 2017
  4. ASTAGRAF XL [Suspect]
     Active Substance: TACROLIMUS
     Dosage: 2 MG, QD
     Dates: start: 2019
  5. PREDNISONE. [Suspect]
     Active Substance: PREDNISONE
     Indication: IMMUNOSUPPRESSANT DRUG THERAPY
     Dosage: UNK
     Dates: start: 2017
  6. EVEROLIMUS. [Suspect]
     Active Substance: EVEROLIMUS
     Indication: PROPHYLAXIS AGAINST TRANSPLANT REJECTION
     Dosage: LOW DOSE
     Dates: start: 201901, end: 2019
  7. EVEROLIMUS. [Suspect]
     Active Substance: EVEROLIMUS
     Indication: IMMUNOSUPPRESSANT DRUG THERAPY
  8. PREDNISONE. [Suspect]
     Active Substance: PREDNISONE
     Dosage: 5 MG, QD
     Dates: start: 201810
  9. ASTAGRAF XL [Suspect]
     Active Substance: TACROLIMUS
     Dosage: 7 MG, QD
     Dates: start: 2019

REACTIONS (18)
  - Rales [Recovering/Resolving]
  - Tinea infection [Recovering/Resolving]
  - Pneumonia [Recovering/Resolving]
  - Erythropoiesis abnormal [Recovering/Resolving]
  - Wound infection [Recovering/Resolving]
  - Asthenia [Recovering/Resolving]
  - Normocytic anaemia [Recovering/Resolving]
  - Aplasia pure red cell [Recovering/Resolving]
  - Cough [Recovering/Resolving]
  - Candida infection [Recovering/Resolving]
  - Escherichia infection [Recovering/Resolving]
  - Parvovirus B19 infection [Recovering/Resolving]
  - Reticulocytopenia [Recovering/Resolving]
  - Crepitations [Recovering/Resolving]
  - Urinary tract infection bacterial [Recovering/Resolving]
  - Pyrexia [Recovering/Resolving]
  - Herpes zoster [Recovering/Resolving]
  - Arthralgia [Recovering/Resolving]

NARRATIVE: CASE EVENT DATE: 2017
